FAERS Safety Report 24406424 (Version 2)
Quarter: 2025Q2

REPORT INFORMATION
  Report Type: Spontaneous
  Country: DE (occurrence: DE)
  Receive Date: 20241007
  Receipt Date: 20250421
  Transmission Date: 20250717
  Serious: Yes (Life-Threatening, Hospitalization, Disabling, Congenital Anomaly, Other)
  Sender: MYLAN
  Company Number: DE-DCGMA-24203946

PATIENT
  Sex: Male
  Weight: 2.84 kg

DRUGS (24)
  1. SERTRALINE [Suspect]
     Active Substance: SERTRALINE HYDROCHLORIDE
     Indication: Product used for unknown indication
     Dosage: 0.5 DOSAGE FORM, QD (DAILY DOSE: 0.5 {DF} EVERY 1 DAY)
  2. SERTRALINE [Suspect]
     Active Substance: SERTRALINE HYDROCHLORIDE
     Indication: Anxiety disorder
     Dosage: 0.5 DOSAGE FORM, QD (DAILY DOSE: 0.5 {DF} EVERY 1 DAY)
  3. SERTRALINE [Suspect]
     Active Substance: SERTRALINE HYDROCHLORIDE
     Dosage: 0.5 DOSAGE FORM, QD (DAILY DOSE: 0.5 {DF} EVERY 1 DAY)
     Route: 064
  4. SERTRALINE [Suspect]
     Active Substance: SERTRALINE HYDROCHLORIDE
     Dosage: 0.5 DOSAGE FORM, QD (DAILY DOSE: 0.5 {DF} EVERY 1 DAY)
     Route: 064
  5. SERTRALINE [Suspect]
     Active Substance: SERTRALINE HYDROCHLORIDE
     Dosage: 0.5 DOSAGE FORM, QD (DAILY DOSE: 0.5 {DF} EVERY 1 DAY)
  6. SERTRALINE [Suspect]
     Active Substance: SERTRALINE HYDROCHLORIDE
     Dosage: 0.5 DOSAGE FORM, QD (DAILY DOSE: 0.5 {DF} EVERY 1 DAY)
  7. SERTRALINE [Suspect]
     Active Substance: SERTRALINE HYDROCHLORIDE
     Dosage: 0.5 DOSAGE FORM, QD (DAILY DOSE: 0.5 {DF} EVERY 1 DAY)
     Route: 064
  8. SERTRALINE [Suspect]
     Active Substance: SERTRALINE HYDROCHLORIDE
     Dosage: 0.5 DOSAGE FORM, QD (DAILY DOSE: 0.5 {DF} EVERY 1 DAY)
     Route: 064
  9. INSULIN LISPRO [Suspect]
     Active Substance: INSULIN LISPRO
     Indication: Product used for unknown indication
  10. INSULIN LISPRO [Suspect]
     Active Substance: INSULIN LISPRO
     Indication: Type 2 diabetes mellitus
  11. INSULIN LISPRO [Suspect]
     Active Substance: INSULIN LISPRO
     Route: 064
  12. INSULIN LISPRO [Suspect]
     Active Substance: INSULIN LISPRO
     Route: 064
  13. INSULIN LISPRO [Suspect]
     Active Substance: INSULIN LISPRO
  14. INSULIN LISPRO [Suspect]
     Active Substance: INSULIN LISPRO
  15. INSULIN LISPRO [Suspect]
     Active Substance: INSULIN LISPRO
     Route: 064
  16. INSULIN LISPRO [Suspect]
     Active Substance: INSULIN LISPRO
     Route: 064
  17. PROTAPHANE [Suspect]
     Active Substance: INSULIN HUMAN
     Indication: Product used for unknown indication
  18. PROTAPHANE [Suspect]
     Active Substance: INSULIN HUMAN
     Indication: Type 2 diabetes mellitus
  19. PROTAPHANE [Suspect]
     Active Substance: INSULIN HUMAN
     Route: 064
  20. PROTAPHANE [Suspect]
     Active Substance: INSULIN HUMAN
     Route: 064
  21. PROTAPHANE [Suspect]
     Active Substance: INSULIN HUMAN
  22. PROTAPHANE [Suspect]
     Active Substance: INSULIN HUMAN
  23. PROTAPHANE [Suspect]
     Active Substance: INSULIN HUMAN
     Route: 064
  24. PROTAPHANE [Suspect]
     Active Substance: INSULIN HUMAN
     Route: 064

REACTIONS (5)
  - Congenital multiplex arthrogryposis [Unknown]
  - Talipes [Unknown]
  - Meningomyelocele [Unknown]
  - Hydrops foetalis [Unknown]
  - Foetal exposure during pregnancy [Unknown]

NARRATIVE: CASE EVENT DATE: 20240605
